FAERS Safety Report 25256276 (Version 1)
Quarter: 2025Q2

REPORT INFORMATION
  Report Type: Spontaneous
  Country: US (occurrence: US)
  Receive Date: 20250430
  Receipt Date: 20250430
  Transmission Date: 20250717
  Serious: No
  Sender: HIKMA
  Company Number: US-HIKMA PHARMACEUTICALS USA INC.-US-H14001-25-00944

PATIENT

DRUGS (3)
  1. FAMOTIDINE [Suspect]
     Active Substance: FAMOTIDINE
     Indication: Product used for unknown indication
     Route: 065
  2. PREDNISONE [Suspect]
     Active Substance: PREDNISONE
     Indication: Product used for unknown indication
     Route: 065
  3. VIGAFYDE [Suspect]
     Active Substance: VIGABATRIN
     Indication: Product used for unknown indication
     Route: 065
     Dates: start: 20250122

REACTIONS (3)
  - Irritability [Unknown]
  - Abdominal distension [Unknown]
  - Feeling abnormal [Unknown]
